FAERS Safety Report 23000511 (Version 2)
Quarter: 2023Q4

REPORT INFORMATION
  Report Type: Report from Study
  Country: US (occurrence: US)
  Receive Date: 20230928
  Receipt Date: 20231219
  Transmission Date: 20240110
  Serious: No
  Sender: FDA-Public Use
  Company Number: US-002147023-NVSC2023US206579

PATIENT
  Sex: Female

DRUGS (1)
  1. LEQVIO [Suspect]
     Active Substance: INCLISIRAN SODIUM
     Indication: Product used for unknown indication
     Dosage: UNK
     Route: 058
     Dates: start: 20230829

REACTIONS (6)
  - Diarrhoea [Unknown]
  - Insomnia [Unknown]
  - Nail bed bleeding [Unknown]
  - Dry skin [Unknown]
  - Alopecia [Unknown]
  - Onychoclasis [Unknown]
